FAERS Safety Report 9327240 (Version 1)
Quarter: 2013Q2

REPORT INFORMATION
  Report Type: Spontaneous
  Country: US (occurrence: US)
  Receive Date: 20130604
  Receipt Date: 20130604
  Transmission Date: 20140414
  Serious: Yes (Other)
  Sender: FDA-Public Use
  Company Number: US-AMGEN-USASP2013038796

PATIENT
  Sex: Female

DRUGS (1)
  1. PROLIA [Suspect]
     Indication: OSTEOPOROSIS POSTMENOPAUSAL
     Dosage: UNK
     Dates: start: 201206

REACTIONS (6)
  - Staphylococcal infection [Unknown]
  - Gait disturbance [Unknown]
  - Joint stiffness [Unknown]
  - Ear infection [Recovered/Resolved]
  - Pain [Unknown]
  - Arthralgia [Unknown]
